FAERS Safety Report 4544787-6 (Version None)
Quarter: 2004Q4

REPORT INFORMATION
  Report Type: 
  Country: None (occurrence: None)
  Receive Date: 20041230
  Receipt Date: 20041220
  Transmission Date: 20050328
  Serious: Yes (Disabling)
  Sender: FDA-Public Use
  Company Number: S04-UKI-08245

PATIENT
  Age: 58 Year
  Sex: Female

DRUGS (1)
  1. CIPRALEX           (ECITALOPRAM) [Suspect]
     Indication: DEPRESSION
     Dosage: 10 MG QD PO
     Route: 048
     Dates: start: 20041030

REACTIONS (1)
  - GRAND MAL CONVULSION [None]
